FAERS Safety Report 6340466-3 (Version None)
Quarter: 2009Q3

REPORT INFORMATION
  Report Type: 
  Country: None (occurrence: None)
  Receive Date: 20090904
  Receipt Date: 20090824
  Transmission Date: 20100115
  Serious: Yes (Disabling)
  Sender: FDA-Public Use
  Company Number: AR-JNJFOC-20081001381

PATIENT
  Sex: Female
  Weight: 65.5 kg

DRUGS (17)
  1. GOLIMUMAB [Suspect]
     Route: 042
  2. GOLIMUMAB [Suspect]
     Route: 042
  3. GOLIMUMAB [Suspect]
     Route: 042
  4. GOLIMUMAB [Suspect]
     Route: 042
  5. GOLIMUMAB [Suspect]
     Route: 042
  6. GOLIMUMAB [Suspect]
     Indication: RHEUMATOID ARTHRITIS
     Route: 042
  7. PLACEBO [Suspect]
     Indication: RHEUMATOID ARTHRITIS
     Route: 042
  8. METHOTREXATE [Suspect]
     Indication: RHEUMATOID ARTHRITIS
     Route: 048
  9. PLACEBO [Suspect]
     Route: 048
  10. PLACEBO [Suspect]
     Route: 048
  11. PLACEBO [Suspect]
     Route: 048
  12. PLACEBO [Suspect]
     Route: 048
  13. DICLOFENAC [Concomitant]
     Indication: RHEUMATOID ARTHRITIS
     Route: 048
  14. FOLIC ACID [Concomitant]
     Indication: PROPHYLAXIS
  15. PARACETAMOL [Concomitant]
     Indication: RHEUMATOID ARTHRITIS
  16. PREDNISONE TAB [Concomitant]
     Indication: RHEUMATOID ARTHRITIS
  17. PANTOPRAZOL [Concomitant]
     Route: 048

REACTIONS (1)
  - OSTEONECROSIS [None]
